FAERS Safety Report 21940147 (Version 1)
Quarter: 2023Q1

REPORT INFORMATION
  Report Type: Report from Study
  Country: US (occurrence: US)
  Receive Date: 20230201
  Receipt Date: 20230201
  Transmission Date: 20230417
  Serious: No
  Sender: FDA-Public Use
  Company Number: US-EXELIXIS-CABO-22049628

PATIENT
  Sex: Male
  Weight: 124.58 kg

DRUGS (4)
  1. CABOMETYX [Suspect]
     Active Substance: CABOZANTINIB S-MALATE
     Indication: Renal cancer
     Dosage: 40 MG, QD
     Route: 048
     Dates: start: 20220216
  2. CABOMETYX [Suspect]
     Active Substance: CABOZANTINIB S-MALATE
     Dosage: 20 MG, QD
     Route: 048
     Dates: start: 202206
  3. WARFARIN [Suspect]
     Active Substance: WARFARIN
     Indication: Product used for unknown indication
     Dosage: UNK
  4. WARFARIN [Suspect]
     Active Substance: WARFARIN
     Dosage: 3 MG FOR FOUR DAYS, 6 MG FOR THREE DAYS, REPEAT

REACTIONS (8)
  - Pruritus [Unknown]
  - Fatigue [Not Recovered/Not Resolved]
  - Diarrhoea [Unknown]
  - Dizziness [Recovered/Resolved]
  - Blood pressure systolic increased [Recovered/Resolved]
  - Dyspnoea exertional [Recovered/Resolved]
  - Dry skin [Unknown]
  - Blood viscosity decreased [Recovered/Resolved]
